FAERS Safety Report 15995601 (Version 4)
Quarter: 2020Q4

REPORT INFORMATION
  Report Type: Report from Study
  Country: US (occurrence: US)
  Receive Date: 20190222
  Receipt Date: 20201016
  Transmission Date: 20210113
  Serious: Yes (Hospitalization, Other)
  Sender: FDA-Public Use
  Company Number: US-JNJFOC-20181209868

PATIENT
  Age: 57 Year
  Sex: Male

DRUGS (2)
  1. STELARA [Suspect]
     Active Substance: USTEKINUMAB
     Indication: CROHN^S DISEASE
     Dosage: AT AN UNSPECIFIED INITIATION DOSE AND THEN ONCE EVERY 8 WEEKS
     Route: 058
     Dates: start: 20181129
  2. STELARA [Suspect]
     Active Substance: USTEKINUMAB
     Route: 058
     Dates: start: 20190125

REACTIONS (7)
  - Infection [Not Recovered/Not Resolved]
  - Bone pain [Not Recovered/Not Resolved]
  - Pollakiuria [Not Recovered/Not Resolved]
  - Streptococcal infection [Unknown]
  - Fungal skin infection [Not Recovered/Not Resolved]
  - Fatigue [Recovered/Resolved]
  - Disturbance in attention [Not Recovered/Not Resolved]

NARRATIVE: CASE EVENT DATE: 20181130
